FAERS Safety Report 10357127 (Version 1)
Quarter: 2014Q3

REPORT INFORMATION
  Report Type: Spontaneous
  Country: US (occurrence: US)
  Receive Date: 20140801
  Receipt Date: 20140801
  Transmission Date: 20150326
  Serious: No
  Sender: FDA-Public Use
  Company Number: US-BAYER-2014-114927

PATIENT
  Age: 57 Year
  Sex: Male
  Weight: 64 kg

DRUGS (1)
  1. ALEVE [Suspect]
     Active Substance: NAPROXEN SODIUM
     Dosage: 1 DF, QD
     Route: 048
     Dates: start: 2013

REACTIONS (2)
  - Incorrect drug administration duration [None]
  - Intentional product misuse [None]

NARRATIVE: CASE EVENT DATE: 2013
